FAERS Safety Report 10263102 (Version 2)
Quarter: 2014Q2

REPORT INFORMATION
  Report Type: Report from Study
  Country: US (occurrence: US)
  Receive Date: 20140626
  Receipt Date: 20140626
  Transmission Date: 20141212
  Serious: Yes (Death)
  Sender: FDA-Public Use
  Company Number: US-MYLANLABS-2014S1001457

PATIENT
  Sex: Female

DRUGS (6)
  1. CLOZAPINE TABLETS [Suspect]
     Route: 048
     Dates: end: 20140110
  2. CLOZAPINE TABLETS [Suspect]
     Route: 048
     Dates: end: 20140110
  3. GEODON [Concomitant]
  4. BUSPAR [Concomitant]
  5. BENZTROPINE [Concomitant]
  6. LORAZEPAM [Concomitant]

REACTIONS (1)
  - Death [Fatal]
